FAERS Safety Report 6252986-0 (Version None)
Quarter: 2009Q2

REPORT INFORMATION
  Report Type: 
  Country: None (occurrence: None)
  Receive Date: 20090629
  Receipt Date: 20090629
  Transmission Date: 20091009
  Serious: Yes (Death, Other)
  Sender: FDA-Public Use
  Company Number: None

PATIENT
  Age: 25 Year
  Sex: Male

DRUGS (1)
  1. BUCKLEY'S DM (NCH) (DEXTROMETHORPHAN HYDROBROMIDE) SYRUP [Suspect]
     Dosage: ORAL
     Route: 048

REACTIONS (2)
  - EXPIRED DRUG ADMINISTERED [None]
  - MYOCARDIAL INFARCTION [None]
